FAERS Safety Report 12558962 (Version 2)
Quarter: 2016Q4

REPORT INFORMATION
  Report Type: Spontaneous
  Country: FR (occurrence: FR)
  Receive Date: 20160715
  Receipt Date: 20161121
  Transmission Date: 20170207
  Serious: Yes (Other)
  Sender: FDA-Public Use
  Company Number: FR-UCBSA-2016026017

PATIENT
  Age: 14 Year
  Sex: Male

DRUGS (2)
  1. METHYLPHENIDATE HYDROCHLORIDE. [Suspect]
     Active Substance: METHYLPHENIDATE HYDROCHLORIDE
     Dosage: 30 MG, ONCE DAILY (QD)
     Route: 048
     Dates: start: 201501, end: 201603
  2. METHYLPHENIDATE HYDROCHLORIDE. [Suspect]
     Active Substance: METHYLPHENIDATE HYDROCHLORIDE
     Indication: ATTENTION DEFICIT/HYPERACTIVITY DISORDER
     Dosage: 20 MG, ONCE DAILY (QD)
     Route: 048
     Dates: start: 20140130, end: 201501

REACTIONS (2)
  - Syncope [Recovered/Resolved]
  - Postural orthostatic tachycardia syndrome [Recovered/Resolved]

NARRATIVE: CASE EVENT DATE: 201510
